FAERS Safety Report 9827631 (Version 1)
Quarter: 2014Q1

REPORT INFORMATION
  Report Type: Spontaneous
  Country: IT (occurrence: IT)
  Receive Date: 20140117
  Receipt Date: 20140117
  Transmission Date: 20141002
  Serious: Yes (Other)
  Sender: FDA-Public Use
  Company Number: IT-PFIZER INC-2014013744

PATIENT
  Age: 83 Year
  Sex: Male

DRUGS (3)
  1. ALFUZOSIN [Suspect]
     Indication: BENIGN PROSTATIC HYPERPLASIA
     Dosage: 10 MG, DAILY
     Route: 048
     Dates: start: 20131124
  2. TORVAST [Concomitant]
     Indication: DYSLIPIDAEMIA
     Dosage: 40 MG, UNK
  3. PERINDOPRIL [Concomitant]
     Dosage: UNK

REACTIONS (3)
  - Asthenia [Not Recovered/Not Resolved]
  - Syncope [Not Recovered/Not Resolved]
  - Vertigo [Not Recovered/Not Resolved]
